FAERS Safety Report 6355238-3 (Version None)
Quarter: 2009Q3

REPORT INFORMATION
  Report Type: 
  Country: None (occurrence: None)
  Receive Date: 20090914
  Receipt Date: 20090901
  Transmission Date: 20100115
  Serious: Yes (Other)
  Sender: FDA-Public Use
  Company Number: ES-MYLANLABS-2009S1015525

PATIENT
  Age: 40 Year
  Sex: Male

DRUGS (12)
  1. TENOFOVIR [Suspect]
     Indication: HIV INFECTION
  2. EMTRICITABINE [Suspect]
     Indication: HIV INFECTION
  3. FOSAMPRENAVIR [Suspect]
     Indication: HIV INFECTION
  4. ZIDOVUDINE [Suspect]
     Indication: HIV INFECTION
  5. DIDANOSINE [Suspect]
     Indication: HIV INFECTION
  6. LAMIVUDINE [Suspect]
     Indication: HIV INFECTION
  7. STAVUDINE [Suspect]
     Indication: HIV INFECTION
  8. NEVIRAPINE [Suspect]
     Indication: HIV INFECTION
  9. EFAVIRENZ [Suspect]
     Indication: HIV INFECTION
  10. LOPINAVIR [Suspect]
     Indication: HIV INFECTION
  11. RITONAVIR [Suspect]
     Indication: HIV INFECTION
  12. NELFINAVIR [Suspect]
     Indication: HIV INFECTION

REACTIONS (1)
  - PORTAL HYPERTENSION [None]
